FAERS Safety Report 23962284 (Version 1)
Quarter: 2024Q2

REPORT INFORMATION
  Report Type: Spontaneous
  Country: US (occurrence: None)
  Receive Date: 20240611
  Receipt Date: 20240611
  Transmission Date: 20240716
  Serious: Yes (Hospitalization)
  Sender: FDA-Public Use
  Company Number: None

PATIENT
  Age: 77 Year
  Sex: Male
  Weight: 76.2 kg

DRUGS (1)
  1. TICE BCG [Suspect]
     Active Substance: BACILLUS CALMETTE-GUERIN SUBSTRAIN TICE LIVE ANTIGEN
     Dates: end: 20240410

REACTIONS (12)
  - Urinary tract infection [None]
  - Pelvic pain [None]
  - Abdominal pain lower [None]
  - Dysuria [None]
  - Micturition urgency [None]
  - Pollakiuria [None]
  - Tachycardia [None]
  - Chills [None]
  - Dyspnoea [None]
  - Urethritis noninfective [None]
  - Cystitis [None]
  - Haematuria [None]

NARRATIVE: CASE EVENT DATE: 20240521
